FAERS Safety Report 19849953 (Version 1)
Quarter: 2021Q3

REPORT INFORMATION
  Report Type: Spontaneous
  Country: GB (occurrence: GB)
  Receive Date: 20210917
  Receipt Date: 20210917
  Transmission Date: 20211014
  Serious: Yes (Other)
  Sender: FDA-Public Use
  Company Number: GB-ALLERGAN-2132269US

PATIENT
  Sex: Female
  Weight: 68 kg

DRUGS (2)
  1. BOTOX [Suspect]
     Active Substance: ONABOTULINUMTOXINA
     Indication: ILL-DEFINED DISORDER
     Dosage: UNK UNK, SINGLE
     Route: 051
     Dates: start: 20210501, end: 20210501
  2. BOTOX [Suspect]
     Active Substance: ONABOTULINUMTOXINA
     Dosage: UNK UNK, SINGLE
     Route: 051
     Dates: start: 20200501, end: 20200501

REACTIONS (3)
  - Off label use [Unknown]
  - Swelling [Recovered/Resolved with Sequelae]
  - Nausea [Recovered/Resolved]

NARRATIVE: CASE EVENT DATE: 20200501
